FAERS Safety Report 24725771 (Version 1)
Quarter: 2024Q4

REPORT INFORMATION
  Report Type: Spontaneous
  Country: US (occurrence: US)
  Receive Date: 20241212
  Receipt Date: 20241212
  Transmission Date: 20250114
  Serious: Yes (Hospitalization, Other)
  Sender: SANOFI AVENTIS
  Company Number: US-SA-2024SA366024

PATIENT
  Age: 56 Year
  Sex: Female

DRUGS (4)
  1. DUPIXENT [Suspect]
     Active Substance: DUPILUMAB
     Indication: Dermatitis atopic
     Dosage: 600 MG, 1X
     Route: 058
     Dates: start: 202406, end: 202406
  2. DUPIXENT [Suspect]
     Active Substance: DUPILUMAB
     Dosage: 300 MG, QOW
     Route: 058
     Dates: start: 2024
  3. MULTIVITAMIN N [AMINOBENZOIC ACID;ASCORBIC ACID;BETAINE HYDROCHLORIDE; [Concomitant]
     Dosage: UNK
  4. IRON [Concomitant]
     Active Substance: IRON
     Dosage: UNK

REACTIONS (1)
  - Gastric haemorrhage [Unknown]
